FAERS Safety Report 6204289-8 (Version None)
Quarter: 2009Q2

REPORT INFORMATION
  Report Type: 
  Country: None (occurrence: None)
  Receive Date: 20090527
  Receipt Date: 20090520
  Transmission Date: 20091009
  Serious: Yes (Hospitalization)
  Sender: FDA-Public Use
  Company Number: SG-PFIZER INC-2007060977

PATIENT
  Age: 63 Year

DRUGS (9)
  1. BLINDED *PLACEBO [Suspect]
     Dosage: UNK
     Route: 048
     Dates: start: 20070228, end: 20070721
  2. BLINDED EPLERENONE [Suspect]
     Dosage: UNK
     Route: 048
     Dates: start: 20070228, end: 20070721
  3. ASPIRIN [Concomitant]
     Route: 048
     Dates: start: 20070127, end: 20070810
  4. ENALAPRIL MALEATE [Concomitant]
     Route: 048
     Dates: start: 20070327
  5. SIMVASTATIN [Concomitant]
     Dosage: EVERY NIGHT
     Route: 048
     Dates: start: 20070128
  6. TOLBUTAMIDE [Concomitant]
     Route: 048
     Dates: start: 20070718
  7. VITAMIN B COMPLEX CAP [Concomitant]
     Dosage: 1 TABLET
     Route: 048
     Dates: start: 20070719
  8. BISOPROLOL [Concomitant]
     Dosage: DAILY
     Route: 048
     Dates: start: 20070204
  9. GLYCERYL TRINITRATE [Concomitant]
     Dosage: WHEN NECESSARY
     Route: 060
     Dates: start: 20070107

REACTIONS (7)
  - CARDIAC FAILURE [None]
  - CONDITION AGGRAVATED [None]
  - DEHYDRATION [None]
  - GOUT [None]
  - METABOLIC ACIDOSIS [None]
  - RENAL FAILURE ACUTE [None]
  - STAPHYLOCOCCAL BACTERAEMIA [None]
